FAERS Safety Report 17230166 (Version 1)
Quarter: 2020Q1

REPORT INFORMATION
  Report Type: Spontaneous
  Country: US (occurrence: US)
  Receive Date: 20200103
  Receipt Date: 20200103
  Transmission Date: 20200409
  Serious: Yes (Hospitalization, Other)
  Sender: FDA-Public Use
  Company Number: US-ASTRAZENECA-2019SF91486

PATIENT
  Age: 19541 Day
  Sex: Male
  Weight: 77.1 kg

DRUGS (3)
  1. ASPIRIN. [Concomitant]
     Active Substance: ASPIRIN
  2. BRILINTA [Suspect]
     Active Substance: TICAGRELOR
     Indication: PLATELET AGGREGATION ABNORMAL
     Route: 048
     Dates: start: 20190303, end: 20191128
  3. WARFARIN [Concomitant]
     Active Substance: WARFARIN
     Dates: end: 20191128

REACTIONS (17)
  - Seizure [Recovering/Resolving]
  - Cerebral haemorrhage [Recovering/Resolving]
  - Eating disorder [Recovering/Resolving]
  - Epistaxis [Recovered/Resolved]
  - Aphasia [Recovering/Resolving]
  - Asthenia [Recovering/Resolving]
  - Ear congestion [Recovering/Resolving]
  - Hypoacusis [Recovering/Resolving]
  - Nasal congestion [Recovering/Resolving]
  - Memory impairment [Recovering/Resolving]
  - Sleep disorder [Recovering/Resolving]
  - Disturbance in attention [Recovering/Resolving]
  - Ocular hyperaemia [Unknown]
  - Weight decreased [Recovering/Resolving]
  - Muscular weakness [Recovering/Resolving]
  - Platelet count decreased [Unknown]
  - Heart rate increased [Recovering/Resolving]

NARRATIVE: CASE EVENT DATE: 201911
